FAERS Safety Report 16370269 (Version 2)
Quarter: 2019Q2

REPORT INFORMATION
  Report Type: Report from Study
  Country: GB (occurrence: GB)
  Receive Date: 20190530
  Receipt Date: 20190613
  Transmission Date: 20190711
  Serious: Yes (Hospitalization)
  Sender: FDA-Public Use
  Company Number: GB-TAKEDA-2019TUS032317

PATIENT
  Sex: Female

DRUGS (1)
  1. IXAZOMIB [Suspect]
     Active Substance: IXAZOMIB
     Indication: PLASMA CELL MYELOMA
     Dosage: UNK
     Route: 048

REACTIONS (8)
  - Febrile neutropenia [Recovered/Resolved]
  - Colitis [Unknown]
  - Pyrexia [Unknown]
  - Asthenia [Unknown]
  - Clostridium difficile colitis [Unknown]
  - Lethargy [Unknown]
  - Discomfort [Unknown]
  - Blood potassium decreased [Unknown]

NARRATIVE: CASE EVENT DATE: 20190521
